FAERS Safety Report 15271223 (Version 1)
Quarter: 2018Q3

REPORT INFORMATION
  Report Type: Spontaneous
  Country: US (occurrence: US)
  Receive Date: 20180727
  Receipt Date: 20180727
  Transmission Date: 20181010
  Serious: Yes (Life-Threatening)
  Sender: FDA-Public Use
  Company Number: None

PATIENT
  Age: 50 Year
  Sex: Female
  Weight: 55.8 kg

DRUGS (3)
  1. VALSARTAN TABLETS, USP 80 MG [Suspect]
     Active Substance: VALSARTAN
     Indication: HYPERTENSION
     Dosage: ?          QUANTITY:1 TABLET(S);?
     Route: 048
     Dates: start: 20130801, end: 20180725
  2. NATURE MADE MULT FOR HER 50+ NO IRON [Concomitant]
  3. ATORVASTATIN [Concomitant]
     Active Substance: ATORVASTATIN

REACTIONS (7)
  - Product use issue [None]
  - Dizziness [None]
  - Anxiety [None]
  - Adenoma benign [None]
  - Blood calcium increased [None]
  - Toxicity to various agents [None]
  - Fatigue [None]

NARRATIVE: CASE EVENT DATE: 20180725
